FAERS Safety Report 4846777-2 (Version None)
Quarter: 2005Q4

REPORT INFORMATION
  Report Type: 
  Country: None (occurrence: None)
  Receive Date: 20051206
  Receipt Date: 20051124
  Transmission Date: 20060501
  Serious: Yes (Hospitalization)
  Sender: FDA-Public Use
  Company Number: FR-MERCK-0512USA00514

PATIENT
  Age: 78 Year
  Sex: Male

DRUGS (4)
  1. ZOCOR [Suspect]
     Route: 048
     Dates: start: 19970101
  2. SERECOR [Suspect]
     Indication: ARRHYTHMIA
     Route: 048
     Dates: start: 19910101
  3. SERECOR [Suspect]
     Indication: ATRIAL FIBRILLATION
     Route: 048
     Dates: start: 19910101
  4. AMLOR [Suspect]
     Route: 065
     Dates: start: 20040101

REACTIONS (2)
  - MYELOPROLIFERATIVE DISORDER [None]
  - SIDEROBLASTIC ANAEMIA [None]
